FAERS Safety Report 10008769 (Version 2)
Quarter: 2014Q1

REPORT INFORMATION
  Report Type: Spontaneous
  Country: US (occurrence: US)
  Receive Date: 20140312
  Receipt Date: 20140312
  Transmission Date: 20141002
  Serious: Yes (Hospitalization)
  Sender: FDA-Public Use
  Company Number: US-INCYTE CORPORATION-2012IN000578

PATIENT
  Age: 34 Year
  Sex: Male
  Weight: 60.32 kg

DRUGS (8)
  1. JAKAFI [Suspect]
     Indication: LEUKAEMIA
     Dosage: 15 MG, BID
     Route: 048
     Dates: start: 20120320
  2. ALLOPURINOL [Concomitant]
     Dosage: 100 MG, UNK
     Route: 048
  3. HYDROCODONE W/ACETAMINOPHEN [Concomitant]
     Dosage: 5/500 MG,
     Route: 048
  4. LORTAB [Concomitant]
     Dosage: 7.5/500 MG
     Route: 048
  5. PROMETHAZINE [Concomitant]
     Dosage: 25 MG, UNK
     Route: 048
  6. QUESTRAN [Concomitant]
     Dosage: 4 G, POWDER, UNK
     Route: 048
  7. RESTORIL [Concomitant]
     Dosage: 15 MG, UNK
     Route: 048
  8. ZANTAC [Concomitant]
     Dosage: 150 MG, UNK
     Route: 048

REACTIONS (1)
  - Platelet count decreased [Unknown]
